FAERS Safety Report 23947844 (Version 1)
Quarter: 2024Q2

REPORT INFORMATION
  Report Type: Report from Study
  Country: US (occurrence: US)
  Receive Date: 20240606
  Receipt Date: 20240606
  Transmission Date: 20240716
  Serious: Yes (Hospitalization)
  Sender: FDA-Public Use
  Company Number: US-BEIGENE-BGN-2024-005677

PATIENT

DRUGS (2)
  1. BRUKINSA [Suspect]
     Active Substance: ZANUBRUTINIB
     Indication: Mantle cell lymphoma
     Dosage: 320 MILLIGRAM DAILY
     Route: 048
     Dates: start: 20240326
  2. BRUKINSA [Suspect]
     Active Substance: ZANUBRUTINIB
     Dosage: 320 MILLIGRAM DAILY
     Route: 048
     Dates: start: 20240326

REACTIONS (6)
  - Hypotension [Unknown]
  - Tachycardia [Unknown]
  - Abdominal pain [Unknown]
  - Intussusception [Unknown]
  - Laboratory test abnormal [Unknown]
  - Fatigue [Unknown]
